FAERS Safety Report 7033045-6 (Version None)
Quarter: 2010Q4

REPORT INFORMATION
  Report Type: 
  Country: None (occurrence: None)
  Receive Date: 20101007
  Receipt Date: 20100930
  Transmission Date: 20110411
  Serious: Yes (Hospitalization, Other)
  Sender: FDA-Public Use
  Company Number: JP-PFIZER INC-2010079815

PATIENT
  Age: 77 Year
  Sex: Male
  Weight: 66.4 kg

DRUGS (8)
  1. DIFLUCAN [Suspect]
     Indication: FUNGAL INFECTION
     Dosage: 300 MG, 1X/DAY
     Route: 048
     Dates: start: 20100524, end: 20100622
  2. HOKUNALIN [Concomitant]
     Dosage: UNK
     Route: 062
  3. AMLODIPINE [Concomitant]
     Dosage: UNK
     Route: 048
  4. TEPRENONE [Concomitant]
     Route: 048
  5. LASIX [Concomitant]
     Dosage: UNK
     Route: 048
  6. TORASEMIDE [Concomitant]
     Dosage: UNK
     Route: 048
  7. LOPRESSOR [Concomitant]
     Dosage: UNK
     Route: 048
  8. ASPIRIN [Concomitant]
     Dosage: UNK
     Route: 048

REACTIONS (4)
  - DIARRHOEA [None]
  - DRUG ERUPTION [None]
  - PSEUDOMEMBRANOUS COLITIS [None]
  - TOXIC EPIDERMAL NECROLYSIS [None]
